FAERS Safety Report 16043314 (Version 3)
Quarter: 2019Q3

REPORT INFORMATION
  Report Type: Spontaneous
  Country: GB (occurrence: GB)
  Receive Date: 20190306
  Receipt Date: 20190716
  Transmission Date: 20191004
  Serious: Yes (Life-Threatening, Hospitalization, Other)
  Sender: FDA-Public Use
  Company Number: GB-MYLANLABS-2019M1020731

PATIENT
  Age: 77 Year
  Sex: Female
  Weight: 53.97 kg

DRUGS (5)
  1. INDAPAMIDE. [Suspect]
     Active Substance: INDAPAMIDE
     Indication: HYPERTENSION
     Dosage: 2.5 MILLIGRAM, QD(IN THE MORNING.)
     Route: 048
     Dates: start: 20180621, end: 20180725
  2. FYBOGEL [Concomitant]
     Active Substance: PLANTAGO OVATA SEED
     Dosage: 2 DOSAGE FORM, QD
  3. CYCLIZINE [Concomitant]
     Active Substance: CYCLIZINE
     Dosage: UNK, PRN
  4. AMLODIPINE [Concomitant]
     Active Substance: AMLODIPINE BESYLATE
     Dosage: UNK
     Dates: end: 20180621
  5. FYBOGEL [Concomitant]
     Active Substance: PLANTAGO OVATA SEED
     Dosage: 1 DOSAGE FORM, QD

REACTIONS (4)
  - Hyponatraemia [Recovered/Resolved]
  - Headache [Unknown]
  - Drug monitoring procedure incorrectly performed [Unknown]
  - Vomiting [Unknown]

NARRATIVE: CASE EVENT DATE: 20180708
